FAERS Safety Report 6376632-0 (Version None)
Quarter: 2009Q3

REPORT INFORMATION
  Report Type: 
  Country: None (occurrence: None)
  Receive Date: 20090925
  Receipt Date: 20090914
  Transmission Date: 20100115
  Serious: Yes (Congenital Anomaly)
  Sender: FDA-Public Use
  Company Number: GB-ROCHE-472250

PATIENT
  Weight: 2.7 kg

DRUGS (11)
  1. INVIRASE [Suspect]
     Dosage: FORM REPORTED AS DRY TABLET.
     Route: 064
     Dates: start: 20060411
  2. KIVEXA [Suspect]
     Dosage: STARTED PRIOR TO CONCEPTION.  DOSING REGIMEN: DAILY.
     Route: 064
  3. KIVEXA [Suspect]
     Route: 064
  4. LAMIVUDINE [Suspect]
     Dosage: STARTED PRIOR TO CONCEPTION
     Route: 064
     Dates: start: 20060411
  5. LAMIVUDINE [Suspect]
     Dosage: RESTARTED THERAPY
     Route: 064
  6. NEVIRAPINE [Suspect]
     Dosage: STARTED PRIOR TO CONCEPTION.
     Route: 064
  7. NEVIRAPINE [Suspect]
     Dosage: THERAPY RESTARTED
     Route: 064
  8. NORVIR [Suspect]
     Route: 064
     Dates: start: 20060411
  9. ZIDOVUDINE [Suspect]
     Route: 064
     Dates: start: 20060411
  10. ABACAVIR [Suspect]
     Indication: ANTIVIRAL TREATMENT
     Dosage: STARTED PRIOR TO CONCEPTION
     Route: 064
  11. ABACAVIR [Suspect]
     Dosage: RESTARTED THERAPY
     Route: 064

REACTIONS (1)
  - ALPHA 1 FOETOPROTEIN INCREASED [None]
